FAERS Safety Report 4430926-4 (Version None)
Quarter: 2004Q3

REPORT INFORMATION
  Report Type: 
  Country: None (occurrence: None)
  Receive Date: 20040823
  Receipt Date: 20040809
  Transmission Date: 20050211
  Serious: Yes (Hospitalization)
  Sender: FDA-Public Use
  Company Number: JP-MERCK-0408USA01268

PATIENT
  Age: 86 Year
  Sex: Male

DRUGS (7)
  1. CARBENIN [Suspect]
     Route: 042
     Dates: start: 20040712, end: 20040716
  2. PEPCID [Suspect]
     Route: 048
     Dates: start: 20040715, end: 20040722
  3. PEPCID [Suspect]
     Route: 048
     Dates: start: 20040722, end: 20040809
  4. LASIX [Concomitant]
     Route: 048
     Dates: start: 20040219
  5. MEROPENEM [Suspect]
     Route: 042
     Dates: start: 20040717, end: 20040804
  6. NITRODERM [Concomitant]
     Route: 061
     Dates: start: 20031001
  7. HOKUNALIN [Concomitant]
     Route: 061
     Dates: start: 20031001

REACTIONS (1)
  - HAEMOLYTIC ANAEMIA [None]
